FAERS Safety Report 10312033 (Version 1)
Quarter: 2014Q3

REPORT INFORMATION
  Report Type: Spontaneous
  Country: CA (occurrence: None)
  Receive Date: 20140715
  Receipt Date: 20140715
  Transmission Date: 20150326
  Serious: Yes (Hospitalization, Other)
  Sender: FDA-Public Use
  Company Number: AXC-2014-000429

PATIENT
  Age: 42 Year
  Sex: Male
  Weight: 95.2 kg

DRUGS (2)
  1. SALOFALK [Suspect]
     Active Substance: MESALAMINE
     Indication: PRODUCT USED FOR UNKNOWN INDICATION
     Route: 054
  2. MYLAN-OMEPRAZOLE (OMEPRAZOLE) SLOW RELEASE CAPSULES [Concomitant]

REACTIONS (5)
  - Local swelling [None]
  - Hyperaesthesia [None]
  - Gait disturbance [None]
  - Paraesthesia [None]
  - Rash [None]
